FAERS Safety Report 8970969 (Version 1)
Quarter: 2012Q4

REPORT INFORMATION
  Report Type: 
  Country: US (occurrence: US)
  Receive Date: 20121218
  Receipt Date: 20121218
  Transmission Date: 20130627
  Serious: No
  Sender: FDA-Public Use
  Company Number: US-BRISTOL-MYERS SQUIBB COMPANY-17005836

PATIENT
  Age: 37 Year
  Sex: Female

DRUGS (5)
  1. ABILIFY [Suspect]
     Indication: MAJOR DEPRESSION
     Dosage: Dose reduced to 5mg,
  2. VIIBRYD [Concomitant]
  3. COGENTIN [Concomitant]
  4. ZOLOFT [Concomitant]
  5. CLONAPIN [Concomitant]

REACTIONS (2)
  - Akathisia [Recovering/Resolving]
  - Amnesia [Recovering/Resolving]
